FAERS Safety Report 23742441 (Version 2)
Quarter: 2024Q4

REPORT INFORMATION
  Report Type: Spontaneous
  Country: JP (occurrence: JP)
  Receive Date: 20240415
  Receipt Date: 20241112
  Transmission Date: 20250115
  Serious: Yes (Other)
  Sender: OTSUKA
  Company Number: JP-OTSUKA-2023_023792

PATIENT
  Age: 4 Decade
  Sex: Female

DRUGS (3)
  1. ABILIFY [Suspect]
     Active Substance: ARIPIPRAZOLE
     Indication: Bipolar I disorder
     Dosage: UNK
     Route: 030
  2. ABILIFY [Suspect]
     Active Substance: ARIPIPRAZOLE
     Indication: Bipolar I disorder
     Dosage: 24MG/DAY
     Route: 048
  3. VALPROATE SODIUM [Concomitant]
     Active Substance: VALPROATE SODIUM
     Indication: Product used for unknown indication
     Dosage: 600MG/DAY
     Route: 065

REACTIONS (2)
  - Caesarean section [Unknown]
  - Maternal exposure during pregnancy [Unknown]
